FAERS Safety Report 9633115 (Version 1)
Quarter: 2013Q4

REPORT INFORMATION
  Report Type: Spontaneous
  Country: US (occurrence: US)
  Receive Date: 20131019
  Receipt Date: 20131019
  Transmission Date: 20140711
  Serious: Yes (Hospitalization, Other)
  Sender: FDA-Public Use
  Company Number: US-MERCK-1310USA008120

PATIENT
  Age: 64 Year
  Sex: Female

DRUGS (3)
  1. JANUVIA [Suspect]
     Indication: TYPE 2 DIABETES MELLITUS
     Route: 048
  2. METFORMIN [Concomitant]
  3. STATIN (UNSPECIFIED) [Concomitant]

REACTIONS (1)
  - Pancreatitis [Recovering/Resolving]
